FAERS Safety Report 22073221 (Version 1)
Quarter: 2023Q1

REPORT INFORMATION
  Report Type: Spontaneous
  Country: IE (occurrence: IE)
  Receive Date: 20230308
  Receipt Date: 20230308
  Transmission Date: 20230418
  Serious: Yes (Other)
  Sender: FDA-Public Use
  Company Number: IE-STERISCIENCE B.V.-2023-ST-001004

PATIENT

DRUGS (3)
  1. BUPIVACAINE [Suspect]
     Active Substance: BUPIVACAINE
     Indication: Product used for unknown indication
     Dosage: THE PATIENT^S MOTHER^S DOSE WAS 11 MILLIGRAM
     Route: 064
  2. MORPHINE [Suspect]
     Active Substance: MORPHINE
     Indication: Product used for unknown indication
     Dosage: THE PATIENT^S MOTHER^S DOSE WAS 100 MICROGRAM.
     Route: 064
  3. PHENYLEPHRINE [Suspect]
     Active Substance: PHENYLEPHRINE HYDROCHLORIDE
     Indication: Product used for unknown indication
     Dosage: THE PATIENT^S MOTHER^S DOSE WAS 50 TO 100 MICROGRAM.
     Route: 064

REACTIONS (2)
  - Premature baby [Unknown]
  - Foetal exposure during delivery [Unknown]
